FAERS Safety Report 7018005-3 (Version None)
Quarter: 2010Q3

REPORT INFORMATION
  Report Type: 
  Country: None (occurrence: None)
  Receive Date: 20100928
  Receipt Date: 20100920
  Transmission Date: 20110219
  Serious: Yes (Other)
  Sender: FDA-Public Use
  Company Number: CA-ABBOTT-10P-028-0666419-00

PATIENT
  Sex: Female
  Weight: 54.48 kg

DRUGS (13)
  1. HUMIRA [Suspect]
     Indication: CROHN'S DISEASE
     Route: 058
     Dates: start: 20080415
  2. HUMIRA [Suspect]
     Dates: start: 20030101
  3. PREDNISONE [Concomitant]
     Indication: CROHN'S DISEASE
     Route: 048
  4. METHOTREXATE [Concomitant]
     Indication: CROHN'S DISEASE
     Route: 048
  5. WELLBUTRIN [Concomitant]
     Indication: ANXIOLYTIC THERAPY
     Route: 048
  6. DIOVAN [Concomitant]
     Indication: HYPERTENSION
     Route: 048
  7. COSOPT [Concomitant]
     Indication: GLAUCOMA
     Route: 047
  8. XALATAN [Concomitant]
     Indication: GLAUCOMA
     Route: 047
  9. EZETROL [Concomitant]
     Indication: BLOOD CHOLESTEROL INCREASED
     Route: 048
  10. VITAMIN D [Concomitant]
     Indication: VITAMIN SUPPLEMENTATION
     Route: 048
  11. ASCORBIC ACID [Concomitant]
     Indication: VITAMIN SUPPLEMENTATION
     Route: 048
  12. CHOLYSTYRAMINE [Concomitant]
     Indication: CROHN'S DISEASE
     Dosage: 4 GRAM MIX WITH WATER
     Route: 048
  13. VITAMIN B-12 [Concomitant]
     Indication: ANAEMIA
     Route: 030

REACTIONS (5)
  - CAROTID ARTERY OCCLUSION [None]
  - CHEST PAIN [None]
  - EYE HAEMORRHAGE [None]
  - NEPHROLITHIASIS [None]
  - ORAL CANDIDIASIS [None]
